FAERS Safety Report 25798197 (Version 2)
Quarter: 2025Q4

REPORT INFORMATION
  Report Type: Spontaneous
  Country: US (occurrence: US)
  Receive Date: 20250912
  Receipt Date: 20251006
  Transmission Date: 20260118
  Serious: No
  Sender: ABBVIE
  Company Number: US-ABBVIE-6450026

PATIENT
  Sex: Male

DRUGS (1)
  1. VYALEV [Suspect]
     Active Substance: FOSCARBIDOPA\FOSLEVODOPA
     Indication: Parkinson^s disease
     Route: 058

REACTIONS (4)
  - Tissue injury [Not Recovered/Not Resolved]
  - Device issue [Not Recovered/Not Resolved]
  - Emotional distress [Unknown]
  - Device adhesion issue [Not Recovered/Not Resolved]
